FAERS Safety Report 24390409 (Version 1)
Quarter: 2024Q4

REPORT INFORMATION
  Report Type: Spontaneous
  Country: CN (occurrence: CN)
  Receive Date: 20241003
  Receipt Date: 20241003
  Transmission Date: 20250114
  Serious: Yes (Hospitalization)
  Sender: ACCORD
  Company Number: CN-MLMSERVICE-20240916-PI193338-00117-6

PATIENT
  Age: 56 Year
  Sex: Male

DRUGS (29)
  1. ETOPOSIDE [Suspect]
     Active Substance: ETOPOSIDE
     Indication: Metastases to peritoneum
     Dates: start: 2019
  2. CYCLOPHOSPHAMIDE [Suspect]
     Active Substance: CYCLOPHOSPHAMIDE
     Indication: Metastases to peritoneum
     Dates: start: 2019
  3. TUCIDINOSTAT [Suspect]
     Active Substance: TUCIDINOSTAT
     Indication: Intestinal metastasis
     Dosage: 30MG TWICE A WEEK
     Dates: start: 2019
  4. DEXAMETHASONE [Suspect]
     Active Substance: DEXAMETHASONE
     Indication: Metastases to peritoneum
     Dates: start: 2019
  5. PEGASPARGASE [Suspect]
     Active Substance: PEGASPARGASE
     Indication: Metastases to lymph nodes
     Dates: start: 2019
  6. PIRARUBICIN [Suspect]
     Active Substance: PIRARUBICIN
     Indication: Enteropathy-associated T-cell lymphoma
     Dates: start: 2019
  7. VINDESINE SULFATE [Suspect]
     Active Substance: VINDESINE SULFATE
     Indication: Metastases to lymph nodes
     Dates: start: 2019
  8. TUCIDINOSTAT [Suspect]
     Active Substance: TUCIDINOSTAT
     Indication: Colon cancer
     Dosage: 30MG TWICE A WEEK
     Dates: start: 2019
  9. DEXAMETHASONE [Suspect]
     Active Substance: DEXAMETHASONE
     Indication: Colon cancer
     Dates: start: 2019
  10. ETOPOSIDE [Suspect]
     Active Substance: ETOPOSIDE
     Indication: Metastases to pelvis
     Dates: start: 2019
  11. ETOPOSIDE [Suspect]
     Active Substance: ETOPOSIDE
     Indication: Intestinal metastasis
     Dates: start: 2019
  12. ETOPOSIDE [Suspect]
     Active Substance: ETOPOSIDE
     Indication: Metastases to gastrointestinal tract
     Dates: start: 2019
  13. ETOPOSIDE [Suspect]
     Active Substance: ETOPOSIDE
     Indication: Metastases to adrenals
     Dates: start: 2019
  14. ETOPOSIDE [Suspect]
     Active Substance: ETOPOSIDE
     Indication: Colon cancer
     Dates: start: 2019
  15. ETOPOSIDE [Suspect]
     Active Substance: ETOPOSIDE
     Indication: Enteropathy-associated T-cell lymphoma
     Dates: start: 2019
  16. ETOPOSIDE [Suspect]
     Active Substance: ETOPOSIDE
     Indication: Metastases to lymph nodes
     Dates: start: 2019
  17. ETOPOSIDE [Suspect]
     Active Substance: ETOPOSIDE
     Indication: Intestinal metastasis
     Dates: start: 2019
  18. ETOPOSIDE [Suspect]
     Active Substance: ETOPOSIDE
     Indication: Colon cancer
     Dates: start: 2019
  19. CYCLOPHOSPHAMIDE [Suspect]
     Active Substance: CYCLOPHOSPHAMIDE
     Indication: Colon cancer
     Dates: start: 2019
  20. CYCLOPHOSPHAMIDE [Suspect]
     Active Substance: CYCLOPHOSPHAMIDE
     Indication: Colon cancer
     Dates: start: 2019
  21. CYCLOPHOSPHAMIDE [Suspect]
     Active Substance: CYCLOPHOSPHAMIDE
     Indication: Intestinal mass
     Dates: start: 2019
  22. CYCLOPHOSPHAMIDE [Suspect]
     Active Substance: CYCLOPHOSPHAMIDE
     Indication: Intestinal metastasis
     Dates: start: 2019
  23. CYCLOPHOSPHAMIDE [Suspect]
     Active Substance: CYCLOPHOSPHAMIDE
     Indication: Metastases to gastrointestinal tract
     Dates: start: 2019
  24. CYCLOPHOSPHAMIDE [Suspect]
     Active Substance: CYCLOPHOSPHAMIDE
     Indication: Metastases to lymph nodes
     Dates: start: 2019
  25. CYCLOPHOSPHAMIDE [Suspect]
     Active Substance: CYCLOPHOSPHAMIDE
     Indication: Enteropathy-associated T-cell lymphoma
     Dates: start: 2019
  26. CYCLOPHOSPHAMIDE [Suspect]
     Active Substance: CYCLOPHOSPHAMIDE
     Indication: Metastases to pelvis
     Dates: start: 2019
  27. CYCLOPHOSPHAMIDE [Suspect]
     Active Substance: CYCLOPHOSPHAMIDE
     Indication: Metastases to adrenals
     Dates: start: 2019
  28. PEGASPARGASE [Suspect]
     Active Substance: PEGASPARGASE
     Indication: Metastases to adrenals
     Dates: start: 2019
  29. PIRARUBICIN [Suspect]
     Active Substance: PIRARUBICIN
     Indication: Metastases to peritoneum
     Dates: start: 2019

REACTIONS (3)
  - Septic shock [Unknown]
  - Candida infection [Unknown]
  - Myelosuppression [Unknown]

NARRATIVE: CASE EVENT DATE: 20190101
